FAERS Safety Report 10930967 (Version 1)
Quarter: 2015Q1

REPORT INFORMATION
  Report Type: Spontaneous
  Country: US (occurrence: US)
  Receive Date: 20150319
  Receipt Date: 20150319
  Transmission Date: 20150721
  Serious: No
  Sender: FDA-Public Use
  Company Number: US-SA-2015SA023387

PATIENT
  Age: 64 Year
  Sex: Male

DRUGS (3)
  1. LEUKINE [Suspect]
     Active Substance: SARGRAMOSTIM
     Indication: PROSTATE CANCER
     Dosage: IN CYCLES OF 2 WEEKS ON AND 2 WEEKS OFF
     Route: 065
     Dates: start: 2014
  2. LEUKINE [Suspect]
     Active Substance: SARGRAMOSTIM
     Indication: PROSTATE CANCER
     Route: 065
  3. LEUKINE [Suspect]
     Active Substance: SARGRAMOSTIM
     Indication: PROSTATE CANCER
     Route: 065

REACTIONS (4)
  - Off label use [Unknown]
  - Injection site swelling [Not Recovered/Not Resolved]
  - Injection site pruritus [Not Recovered/Not Resolved]
  - Injection site erythema [Not Recovered/Not Resolved]

NARRATIVE: CASE EVENT DATE: 2014
